FAERS Safety Report 25431954 (Version 1)
Quarter: 2025Q2

REPORT INFORMATION
  Report Type: Spontaneous
  Country: DE (occurrence: DE)
  Receive Date: 20250613
  Receipt Date: 20250613
  Transmission Date: 20250717
  Serious: Yes (Hospitalization, Other)
  Sender: AMGEN
  Company Number: DE-AMGEN-DEUSP2025112055

PATIENT
  Age: 70 Year
  Sex: Male

DRUGS (5)
  1. BEVACIZUMAB [Suspect]
     Active Substance: BEVACIZUMAB
     Indication: Colorectal adenocarcinoma
     Route: 065
  2. LEUCOVORIN [Concomitant]
     Active Substance: LEUCOVORIN\LEUCOVORIN CALCIUM
  3. FLUOROURACIL [Concomitant]
     Active Substance: FLUOROURACIL
  4. IRINOTECAN [Concomitant]
     Active Substance: IRINOTECAN
  5. FLUOROURACIL\LEUCOVORIN CALCIUM\OXALIPLATIN [Concomitant]
     Active Substance: FLUOROURACIL\LEUCOVORIN CALCIUM\OXALIPLATIN

REACTIONS (13)
  - Tumour perforation [Recovered/Resolved]
  - Metastases to liver [Unknown]
  - Colorectal adenocarcinoma [Unknown]
  - Metastases to peritoneum [Unknown]
  - Mechanical ileus [Recovered/Resolved]
  - Gastrointestinal stoma complication [Unknown]
  - C-reactive protein increased [Unknown]
  - Large intestinal obstruction [Recovering/Resolving]
  - Abdominal wall abscess [Unknown]
  - Abdominal pain [Unknown]
  - Overflow diarrhoea [Unknown]
  - Abdominal adhesions [Unknown]
  - Vomiting [Recovered/Resolved]
